FAERS Safety Report 5054642-3 (Version None)
Quarter: 2006Q3

REPORT INFORMATION
  Report Type: 
  Country: None (occurrence: None)
  Receive Date: 20060719
  Receipt Date: 20020325
  Transmission Date: 20061208
  Serious: Yes (Death)
  Sender: FDA-Public Use
  Company Number: FR-SOLVAY-00202000909

PATIENT
  Age: 0 Day
  Sex: Female
  Weight: 2.1 kg

DRUGS (9)
  1. LIPANTHYL [Concomitant]
     Indication: DRUG EXPOSURE DURING PREGNANCY
     Dosage: DAILY DOSE: UNK.
     Route: 065
     Dates: end: 19960223
  2. COVERSYL [Suspect]
     Indication: HYPERTENSION
     Dosage: DAILY DOSE: 4 MG.
     Route: 048
     Dates: start: 19940630, end: 19960227
  3. ASPEGIC 1000 [Suspect]
     Indication: DRUG EXPOSURE DURING PREGNANCY
     Dosage: DAILY DOSE: 100 MILLIGRAM(S)
     Route: 065
     Dates: start: 19960403
  4. CATAPRES [Concomitant]
     Indication: PREGNANCY INDUCED HYPERTENSION
     Dosage: DAILY DOSE:  UNKNOWN
     Route: 065
     Dates: start: 19960701
  5. TORENTAL [Suspect]
     Indication: DRUG EXPOSURE DURING PREGNANCY
     Dosage: DAILY DOSE: 3 DF.
     Route: 065
     Dates: start: 19940630, end: 19960223
  6. LASILIX [Concomitant]
     Indication: PREGNANCY INDUCED HYPERTENSION
     Dosage: DAILY DOSE:  UNKNOWN
     Route: 065
     Dates: start: 19960701
  7. ISOPTIN [Suspect]
     Indication: DRUG EXPOSURE DURING PREGNANCY
     Dosage: DAILY DOSE: 1 DF.
     Route: 065
  8. PROZAC [Suspect]
     Indication: DRUG EXPOSURE DURING PREGNANCY
     Dosage: DAILY DOSE: 1 DF.
     Route: 065
     Dates: end: 19960131
  9. XANAX [Suspect]
     Indication: DRUG EXPOSURE DURING PREGNANCY
     Dosage: DAILY DOSE: 2 DF.
     Route: 065
     Dates: start: 19940630, end: 19960131

REACTIONS (11)
  - BLOOD GASES ABNORMAL [None]
  - BRADYCARDIA [None]
  - CYANOSIS [None]
  - DEATH [None]
  - HEART DISEASE CONGENITAL [None]
  - HYPERTENSION [None]
  - HYPOTENSION [None]
  - METABOLIC ACIDOSIS [None]
  - OEDEMA [None]
  - PALLOR [None]
  - VENTRICULAR FIBRILLATION [None]
